FAERS Safety Report 4932784-8 (Version None)
Quarter: 2006Q1

REPORT INFORMATION
  Report Type: 
  Country: None (occurrence: None)
  Receive Date: 20060306
  Receipt Date: 20060223
  Transmission Date: 20060701
  Serious: Yes (Other)
  Sender: FDA-Public Use
  Company Number: GB-BOEHRINGER INGELHEIM PHARMACEUTICALS, INC.-2006-BP-02421YA

PATIENT
  Age: 79 Year
  Sex: Male

DRUGS (2)
  1. TAMSULOSIN HCL [Suspect]
     Route: 048
     Dates: start: 20051212, end: 20060210
  2. URSODEOXYCHOLIC ACID [Concomitant]
     Dates: start: 19960101

REACTIONS (2)
  - CONDITION AGGRAVATED [None]
  - PSORIASIS [None]
